FAERS Safety Report 4538448-7 (Version None)
Quarter: 2004Q4

REPORT INFORMATION
  Report Type: 
  Country: None (occurrence: None)
  Receive Date: 20041227
  Receipt Date: 20041214
  Transmission Date: 20050328
  Serious: Yes (Other)
  Sender: FDA-Public Use
  Company Number: AU-JNJFOC-20041104816

PATIENT
  Sex: Female
  Weight: 70 kg

DRUGS (1)
  1. RISPERDAL [Suspect]
     Route: 049

REACTIONS (2)
  - HYPOTENSION [None]
  - SUPRAVENTRICULAR TACHYCARDIA [None]
